FAERS Safety Report 6150512-8 (Version None)
Quarter: 2009Q2

REPORT INFORMATION
  Report Type: 
  Country: None (occurrence: None)
  Receive Date: 20090407
  Receipt Date: 20090325
  Transmission Date: 20091009
  Serious: Yes (Other)
  Sender: FDA-Public Use
  Company Number: CERZ-1000575

PATIENT
  Age: 34 Year
  Sex: Male

DRUGS (3)
  1. CEREZYME [Suspect]
     Indication: GAUCHER'S DISEASE
     Dosage: 60 U/KG, Q2W, INTRAVENOUS
     Route: 042
     Dates: start: 19981101, end: 20000901
  2. CEREDASE [Suspect]
     Indication: GAUCHER'S DISEASE
     Dosage: 60 U/KG/MONTH, INTRAVENOUS; 30 U/KG/MONTH, INTRAVENOUS
     Route: 042
     Dates: start: 19971101, end: 19980501
  3. CEREDASE [Suspect]
     Indication: GAUCHER'S DISEASE
     Dosage: 60 U/KG/MONTH, INTRAVENOUS; 30 U/KG/MONTH, INTRAVENOUS
     Route: 042
     Dates: start: 19980501, end: 19981101

REACTIONS (3)
  - ACUTE LYMPHOCYTIC LEUKAEMIA [None]
  - CHOLECYSTITIS ACUTE [None]
  - PERITONEAL HAEMORRHAGE [None]
